FAERS Safety Report 9213215 (Version 1)
Quarter: 2013Q2

REPORT INFORMATION
  Report Type: Spontaneous
  Country: US (occurrence: US)
  Receive Date: 20130405
  Receipt Date: 20130405
  Transmission Date: 20140414
  Serious: No
  Sender: FDA-Public Use
  Company Number: US-JNJFOC-20130304950

PATIENT
  Age: 54 Year
  Sex: Male

DRUGS (4)
  1. INVEGA SUSTENNA [Suspect]
     Indication: PRODUCT USED FOR UNKNOWN INDICATION
     Route: 030
  2. ALPRAZOLAM [Concomitant]
     Route: 065
  3. SERTRALINE [Concomitant]
     Route: 065
  4. LAMOTRIGINE [Concomitant]
     Route: 065

REACTIONS (1)
  - Drug dose omission [Not Recovered/Not Resolved]
